FAERS Safety Report 9147084 (Version 3)
Quarter: 2014Q1

REPORT INFORMATION
  Report Type: Spontaneous
  Country: US (occurrence: US)
  Receive Date: 20130307
  Receipt Date: 20140331
  Transmission Date: 20141002
  Serious: Yes (Hospitalization)
  Sender: FDA-Public Use
  Company Number: US-BAYER-2013-025541

PATIENT
  Age: 26 Year
  Sex: Female

DRUGS (3)
  1. MIRENA [Suspect]
     Indication: CONTRACEPTION
     Dosage: 20 MCG/24HR, CONT
     Route: 015
     Dates: start: 20090126, end: 20110125
  2. IBUPROFEN [Concomitant]
  3. HYDROCODONE W/ACETAMINOPHEN [Concomitant]

REACTIONS (12)
  - Uterine perforation [None]
  - Abdominal pain upper [None]
  - Injury [None]
  - Pain [None]
  - Emotional distress [None]
  - Depression [None]
  - Anxiety [None]
  - Psychological trauma [None]
  - Sexual dysfunction [None]
  - Sleep disorder [None]
  - Device failure [None]
  - Device dislocation [None]
